FAERS Safety Report 8789608 (Version 1)
Quarter: 2012Q4

REPORT INFORMATION
  Report Type: Spontaneous
  Country: US (occurrence: None)
  Receive Date: 20120910
  Receipt Date: 20120910
  Transmission Date: 20130627
  Serious: Yes (Other)
  Sender: FDA-Public Use
  Company Number: None

PATIENT
  Age: 81 Year
  Sex: Female
  Weight: 64.86 kg

DRUGS (1)
  1. AMIODARONE [Suspect]
     Indication: CARDIAC ARRHYTHMIA
     Dosage: 2 FOR 7 DAYS 1 DAILY
     Dates: start: 20120711

REACTIONS (8)
  - Hypersensitivity [None]
  - Urticaria [None]
  - Pruritus [None]
  - Pruritus [None]
  - Oedema peripheral [None]
  - Oedema peripheral [None]
  - Skin fissures [None]
  - Skin exfoliation [None]
